FAERS Safety Report 6398324-4 (Version None)
Quarter: 2009Q4

REPORT INFORMATION
  Report Type: 
  Country: None (occurrence: None)
  Receive Date: 20091013
  Receipt Date: 20091002
  Transmission Date: 20100525
  Serious: Yes (Hospitalization)
  Sender: FDA-Public Use
  Company Number: JP-PFIZER INC-2009279427

PATIENT
  Age: 85 Year

DRUGS (1)
  1. UNASYN [Suspect]
     Indication: PNEUMONIA ASPIRATION
     Dosage: UNK
     Route: 042

REACTIONS (2)
  - PYREXIA [None]
  - RASH [None]
